FAERS Safety Report 5109127-2 (Version None)
Quarter: 2006Q3

REPORT INFORMATION
  Report Type: 
  Country: None (occurrence: None)
  Receive Date: 20060920
  Receipt Date: 20060628
  Transmission Date: 20061208
  Serious: Yes (Life-Threatening, Hospitalization)
  Sender: FDA-Public Use
  Company Number: ZM-ROCHE-453365

PATIENT
  Age: 28 Year
  Sex: Male
  Weight: 56 kg

DRUGS (1)
  1. MEFLOQUINE HCL [Suspect]
     Indication: MALARIA
     Route: 048
     Dates: start: 20051121, end: 20051121

REACTIONS (9)
  - ABDOMINAL DISTENSION [None]
  - BLOOD ALBUMIN DECREASED [None]
  - BLOOD CREATININE INCREASED [None]
  - BLOOD POTASSIUM DECREASED [None]
  - BLOOD SODIUM DECREASED [None]
  - BODY TEMPERATURE DECREASED [None]
  - NEPHROTIC SYNDROME [None]
  - OEDEMA PERIPHERAL [None]
  - RESPIRATORY RATE INCREASED [None]
